FAERS Safety Report 6223736-9 (Version None)
Quarter: 2009Q2

REPORT INFORMATION
  Report Type: 
  Country: None (occurrence: None)
  Receive Date: 20090611
  Receipt Date: 20090504
  Transmission Date: 20091009
  Serious: No
  Sender: FDA-Public Use
  Company Number: PR-ABBOTT-09P-131-0571714-00

PATIENT
  Sex: Male
  Weight: 72.64 kg

DRUGS (5)
  1. HUMIRA [Suspect]
     Indication: UVEITIS
     Dates: start: 20081010
  2. HUMIRA [Suspect]
     Indication: PSORIASIS
  3. PRED FORTE OPHTHALMIC [Concomitant]
     Indication: DRUG USE FOR UNKNOWN INDICATION
  4. ISOPT OPHTHALMIC [Concomitant]
     Indication: DRUG USE FOR UNKNOWN INDICATION
  5. NEBENAC OPHTHALMIC [Concomitant]
     Indication: DRUG USE FOR UNKNOWN INDICATION

REACTIONS (2)
  - PARAESTHESIA [None]
  - PRURITUS [None]
